FAERS Safety Report 4596688-5 (Version None)
Quarter: 2005Q1

REPORT INFORMATION
  Report Type: 
  Country: None (occurrence: None)
  Receive Date: 20050228
  Receipt Date: 20040130
  Transmission Date: 20050727
  Serious: No
  Sender: FDA-Public Use
  Company Number: 7397

PATIENT
  Age: 23 Year
  Sex: Male

DRUGS (4)
  1. METHOTREXATE [Suspect]
     Dosage: IT
     Route: 037
  2. DOXORUBICIN HCL [Suspect]
     Dosage: IV
     Route: 042
  3. VINCRISTINE [Suspect]
     Dosage: IV
     Route: 042
  4. CYCLOPHOSPHAMIDE [Suspect]
     Dosage: IV
     Route: 042

REACTIONS (1)
  - MENINGIOMA [None]
